FAERS Safety Report 19039696 (Version 1)
Quarter: 2021Q1

REPORT INFORMATION
  Report Type: Spontaneous
  Country: US (occurrence: US)
  Receive Date: 20210322
  Receipt Date: 20210322
  Transmission Date: 20210420
  Serious: No
  Sender: FDA-Public Use
  Company Number: US-TEVA-2021-US-1890145

PATIENT
  Sex: Male

DRUGS (1)
  1. BUTALBITAL, ACETAMINOPHEN, AND CAFFEINE WATSON [Suspect]
     Active Substance: ACETAMINOPHEN\BUTALBITAL\CAFFEINE
     Indication: HEADACHE
     Dosage: 50 MG/ 325 MG/ 40 MG
     Route: 065

REACTIONS (1)
  - Drug ineffective [Unknown]
